FAERS Safety Report 15496972 (Version 1)
Quarter: 2018Q4

REPORT INFORMATION
  Report Type: Spontaneous
  Country: US (occurrence: US)
  Receive Date: 20181015
  Receipt Date: 20181015
  Transmission Date: 20190205
  Serious: No
  Sender: FDA-Public Use
  Company Number: US-009507513-1809USA009176

PATIENT
  Sex: Female

DRUGS (1)
  1. KEYTRUDA [Suspect]
     Active Substance: PEMBROLIZUMAB
     Indication: OVARIAN CANCER
     Dosage: 200 MG(ONE DOSE)
     Dates: start: 20180830

REACTIONS (7)
  - Vomiting [Unknown]
  - Cold sweat [Unknown]
  - Asthenia [Unknown]
  - Constipation [Recovering/Resolving]
  - Product use in unapproved indication [Unknown]
  - Blood thyroid stimulating hormone increased [Unknown]
  - Feeling cold [Unknown]

NARRATIVE: CASE EVENT DATE: 2018
